FAERS Safety Report 14098766 (Version 1)
Quarter: 2017Q4

REPORT INFORMATION
  Report Type: Spontaneous
  Country: US (occurrence: None)
  Receive Date: 20171016
  Receipt Date: 20171016
  Transmission Date: 20180321
  Serious: No
  Sender: FDA-Public Use
  Company Number: None

PATIENT

DRUGS (1)
  1. OXYTOCIN. [Suspect]
     Active Substance: OXYTOCIN

REACTIONS (5)
  - Postpartum haemorrhage [None]
  - Drug ineffective [None]
  - Product measured potency issue [None]
  - Therapeutic response decreased [None]
  - Product storage error [None]

NARRATIVE: CASE EVENT DATE: 2017
